FAERS Safety Report 6292965-0 (Version None)
Quarter: 2009Q3

REPORT INFORMATION
  Report Type: 
  Country: None (occurrence: None)
  Receive Date: 20090729
  Receipt Date: 20090720
  Transmission Date: 20100115
  Serious: Yes (Other)
  Sender: FDA-Public Use
  Company Number: ADR7832009

PATIENT
  Age: 64 Year
  Sex: Female

DRUGS (2)
  1. ALENDRONIC ACID (MFR: UNKNOWN) [Suspect]
     Indication: OSTEOPOROSIS
     Dosage: 70 MG WEEKLY
     Dates: start: 20070301, end: 20070401
  2. ACTONEL [Concomitant]

REACTIONS (5)
  - COUGH [None]
  - GASTROOESOPHAGEAL REFLUX DISEASE [None]
  - LARYNGEAL OEDEMA [None]
  - SENSATION OF FOREIGN BODY [None]
  - VOCAL CORD DISORDER [None]
